FAERS Safety Report 15945704 (Version 1)
Quarter: 2019Q1

REPORT INFORMATION
  Report Type: Spontaneous
  Country: GB (occurrence: GB)
  Receive Date: 20190211
  Receipt Date: 20190211
  Transmission Date: 20190417
  Serious: Yes (Death)
  Sender: FDA-Public Use
  Company Number: GB-EMD SERONO-9070396

PATIENT
  Sex: Female

DRUGS (1)
  1. REBIF [Suspect]
     Active Substance: INTERFERON BETA-1A
     Indication: MULTIPLE SCLEROSIS
     Dosage: FORM STRENGTH: 36 MEGA U/1.5 ML CARTRIDGE?44MICROGRAMS/0.5ML (12MILLION UNITS) SOLUTION FOR INJECTIO

REACTIONS (1)
  - Death [Fatal]
